FAERS Safety Report 11219713 (Version 2)
Quarter: 2015Q3

REPORT INFORMATION
  Report Type: Spontaneous
  Country: US (occurrence: US)
  Receive Date: 20150625
  Receipt Date: 20150804
  Transmission Date: 20151125
  Serious: Yes (Death, Hospitalization)
  Sender: FDA-Public Use
  Company Number: US-INCYTE CORPORATION-2015IN001636

PATIENT
  Age: 75 Year
  Sex: Female
  Weight: 58.7 kg

DRUGS (6)
  1. HYDROXYUREA. [Concomitant]
     Active Substance: HYDROXYUREA
     Dosage: 1500 MG, QD
     Dates: end: 20150407
  2. JAKAFI [Suspect]
     Active Substance: RUXOLITINIB
     Indication: CHRONIC MYELOID LEUKAEMIA
     Dosage: 5 MG, BID
     Route: 048
     Dates: start: 20150225, end: 20150407
  3. HYDROXYUREA. [Concomitant]
     Active Substance: HYDROXYUREA
     Dosage: 500 MG, QD
     Dates: start: 20150409, end: 20150411
  4. HYDROXYUREA. [Concomitant]
     Active Substance: HYDROXYUREA
     Dosage: 1000 MG, QD
     Dates: start: 20150412, end: 20150414
  5. JAKAFI [Suspect]
     Active Substance: RUXOLITINIB
     Indication: OFF LABEL USE
     Dosage: 15 MG, BID
     Route: 048
     Dates: start: 20150227, end: 20150407
  6. JAKAFI [Suspect]
     Active Substance: RUXOLITINIB
     Dosage: 15 MG EVERY OTHER DAY
     Route: 048
     Dates: start: 20150409, end: 20150412

REACTIONS (4)
  - Acute myeloid leukaemia [Fatal]
  - Off label use [Unknown]
  - Sepsis [Not Recovered/Not Resolved]
  - Localised infection [Not Recovered/Not Resolved]

NARRATIVE: CASE EVENT DATE: 20150407
